FAERS Safety Report 7904694-5 (Version None)
Quarter: 2011Q4

REPORT INFORMATION
  Report Type: 
  Country: None (occurrence: None)
  Receive Date: 20111109
  Receipt Date: 20111031
  Transmission Date: 20120403
  Serious: Yes (Disabling)
  Sender: FDA-Public Use
  Company Number: GB-GLAXOSMITHKLINE-B0759341A

PATIENT
  Age: 76 Year
  Sex: Male
  Weight: 120 kg

DRUGS (28)
  1. CHLORHEXIDINE GLUCONATE [Concomitant]
     Dates: start: 20110714, end: 20110728
  2. QUININE SULFATE [Concomitant]
     Dates: start: 20110801, end: 20110928
  3. TAMSULOSIN HYDROCHLORIDE [Concomitant]
     Dates: start: 20110801, end: 20110829
  4. RAMIPRIL [Concomitant]
     Dates: start: 20110824
  5. SOLIFENACIN SUCCINATE [Concomitant]
     Dates: start: 20110824
  6. ORLISTAT [Concomitant]
     Dates: start: 20110905, end: 20111003
  7. HYOSCINE HYDROBROMIDE [Concomitant]
     Dates: start: 20110912
  8. ALBUTEROL SULFATE AUTOHALER [Concomitant]
     Dates: start: 20110711, end: 20110928
  9. AMOXICILLIN [Concomitant]
     Dates: start: 20110916, end: 20110921
  10. TAMSULOSIN HYDROCHLORIDE [Concomitant]
     Dates: start: 20111010
  11. HYDROMOL CREAM [Concomitant]
     Dates: start: 20110824, end: 20110903
  12. BUDESONIDE [Concomitant]
     Dates: start: 20110831, end: 20110901
  13. ROPINIROLE [Suspect]
     Dates: start: 20110801
  14. ORLISTAT [Concomitant]
     Dates: start: 20110711, end: 20110808
  15. CARBOCISTEINE [Concomitant]
     Dates: start: 20110824, end: 20110923
  16. FUROSEMIDE [Concomitant]
     Dates: start: 20110831
  17. INDACATEROL [Concomitant]
     Dates: start: 20110801, end: 20110930
  18. PANTOPRAZOLE [Concomitant]
     Dates: start: 20110905
  19. ACETAMINOPHEN AND CODEINE PHOSPHATE [Concomitant]
     Dates: start: 20111017
  20. CARBOCISTEINE [Concomitant]
     Dates: start: 20110627, end: 20110727
  21. CARBOCISTEINE [Concomitant]
     Dates: start: 20111010
  22. FLOXACILLIN SODIUM [Concomitant]
     Dates: start: 20111003
  23. LACTULOSE [Concomitant]
     Dates: start: 20111017
  24. SENNA [Concomitant]
     Dates: start: 20111017
  25. CETIRIZINE HCL [Concomitant]
     Dates: start: 20110509, end: 20110801
  26. SOLIFENACIN SUCCINATE [Concomitant]
     Dates: start: 20110509, end: 20110801
  27. DEPO-MEDROL [Concomitant]
     Dates: start: 20110831, end: 20110901
  28. DOXAZOSIN MESYLATE [Concomitant]
     Dates: start: 20110926

REACTIONS (2)
  - TARDIVE DYSKINESIA [None]
  - DYSKINESIA [None]
